FAERS Safety Report 26199599 (Version 1)
Quarter: 2025Q4

REPORT INFORMATION
  Report Type: Report from Study
  Country: US (occurrence: US)
  Receive Date: 20251225
  Receipt Date: 20251225
  Transmission Date: 20260117
  Serious: Yes (Hospitalization)
  Sender: ABBVIE
  Company Number: US-ABBVIE-6604545

PATIENT
  Age: 63 Year
  Sex: Female

DRUGS (1)
  1. VENCLEXTA [Suspect]
     Active Substance: VENETOCLAX
     Indication: Myelodysplastic syndrome
     Route: 048
     Dates: start: 202510

REACTIONS (2)
  - Transfusion [Unknown]
  - Product distribution issue [Not Recovered/Not Resolved]

NARRATIVE: CASE EVENT DATE: 20251202
